FAERS Safety Report 12139733 (Version 1)
Quarter: 2016Q1

REPORT INFORMATION
  Report Type: Report from Study
  Country: US (occurrence: US)
  Receive Date: 20160303
  Receipt Date: 20160303
  Transmission Date: 20160526
  Serious: Yes (Other)
  Sender: FDA-Public Use
  Company Number: US-AMGEN-USASL2016024575

PATIENT
  Age: 77 Year
  Sex: Male

DRUGS (3)
  1. ENBREL [Suspect]
     Active Substance: ETANERCEPT
     Indication: RHEUMATOID ARTHRITIS
     Dosage: 50 MG, QWK
     Route: 065
     Dates: start: 2013
  2. TYLENOL ARTHRITIS PAIN [Concomitant]
     Active Substance: ACETAMINOPHEN
     Dosage: UNK
  3. ASPIRIN 81 [Concomitant]
     Active Substance: ASPIRIN
     Dosage: UNK

REACTIONS (13)
  - Erythema [Unknown]
  - Dry skin [Unknown]
  - Skin haemorrhage [Unknown]
  - Sneezing [Unknown]
  - Scratch [Unknown]
  - Cardiomegaly [Unknown]
  - Muscle disorder [Unknown]
  - Myalgia [Unknown]
  - Hepatomegaly [Unknown]
  - Pruritus [Unknown]
  - Hepatic enzyme increased [Unknown]
  - Knee arthroplasty [Unknown]
  - Rash [Unknown]

NARRATIVE: CASE EVENT DATE: 2014
